FAERS Safety Report 20777644 (Version 1)
Quarter: 2022Q2

REPORT INFORMATION
  Report Type: Spontaneous
  Country: US (occurrence: None)
  Receive Date: 20220502
  Receipt Date: 20220502
  Transmission Date: 20220720
  Serious: No
  Sender: FDA-Public Use
  Company Number: None

PATIENT
  Age: 30 Year
  Sex: Female

DRUGS (1)
  1. OCREVUS [Suspect]
     Active Substance: OCRELIZUMAB
     Indication: Multiple sclerosis

REACTIONS (5)
  - Dizziness [None]
  - Throat irritation [None]
  - Burning sensation [None]
  - Palpitations [None]
  - Infusion related reaction [None]

NARRATIVE: CASE EVENT DATE: 20220429
